FAERS Safety Report 14311360 (Version 1)
Quarter: 2017Q4

REPORT INFORMATION
  Report Type: Spontaneous
  Country: US (occurrence: US)
  Receive Date: 20171221
  Receipt Date: 20171221
  Transmission Date: 20180321
  Serious: No
  Sender: FDA-Public Use
  Company Number: US-NOVEN PHARMACEUTICALS, INC.-US2017000874

PATIENT

DRUGS (5)
  1. MINIVELLE [Suspect]
     Active Substance: ESTRADIOL
     Indication: MENOPAUSAL SYMPTOMS
     Dosage: 0.0375 MG, UNKNOWN
     Route: 062
  2. MINIVELLE [Suspect]
     Active Substance: ESTRADIOL
     Dosage: 0.05 MG, UNKNOWN
     Route: 062
  3. MINIVELLE [Suspect]
     Active Substance: ESTRADIOL
     Dosage: CUTTING 0.05 MG PATCHES INTO 2/3RD, UNKNOWNUNK
     Route: 062
  4. MINIVELLE [Suspect]
     Active Substance: ESTRADIOL
     Dosage: 0.0375 MG, UNKNOWN
     Route: 062
  5. PROGESTERONE. [Concomitant]
     Active Substance: PROGESTERONE
     Dosage: 100 MG, QD
     Route: 048

REACTIONS (3)
  - Off label use [Unknown]
  - Migraine [Unknown]
  - Wrong technique in product usage process [Not Recovered/Not Resolved]
